FAERS Safety Report 7835479-6 (Version None)
Quarter: 2011Q4

REPORT INFORMATION
  Report Type: 
  Country: None (occurrence: None)
  Receive Date: 20111024
  Receipt Date: 20111013
  Transmission Date: 20120403
  Serious: Yes (Hospitalization)
  Sender: FDA-Public Use
  Company Number: JP-ASTRAZENECA-2011SE43991

PATIENT
  Age: 47 Year
  Sex: Female

DRUGS (1)
  1. SYMBICORT [Suspect]
     Indication: ASTHMA
     Dosage: 2 DF, NUMBER OF SEPARATE DOSAGES UNKNOWN, FREQUENCY UNKNOWN
     Route: 055
     Dates: start: 20110715, end: 20110719

REACTIONS (3)
  - NASAL CONGESTION [None]
  - LIP OEDEMA [None]
  - PHARYNGEAL STENOSIS [None]
